FAERS Safety Report 8121330-6 (Version None)
Quarter: 2012Q1

REPORT INFORMATION
  Report Type: 
  Country: None (occurrence: None)
  Receive Date: 20120208
  Receipt Date: 20120202
  Transmission Date: 20120608
  Serious: Yes (Death)
  Sender: FDA-Public Use
  Company Number: ES-ASTELLAS-2011EU009295

PATIENT
  Age: 51 Year
  Sex: Male
  Weight: 68 kg

DRUGS (1)
  1. MYCAMINE [Suspect]
     Indication: PROPHYLAXIS
     Dosage: 50 MG, UNKNOWN/D
     Route: 042
     Dates: start: 20111010, end: 20111030

REACTIONS (3)
  - CANDIDIASIS [None]
  - SEPTIC SHOCK [None]
  - DRUG INEFFECTIVE [None]
